FAERS Safety Report 12192427 (Version 1)
Quarter: 2016Q1

REPORT INFORMATION
  Report Type: Spontaneous
  Country: GR (occurrence: GR)
  Receive Date: 20160318
  Receipt Date: 20160318
  Transmission Date: 20160526
  Serious: No
  Sender: FDA-Public Use
  Company Number: GR-ELI_LILLY_AND_COMPANY-GR201603004905

PATIENT
  Age: 40 Year
  Sex: Female

DRUGS (2)
  1. AMISULPRIDE [Concomitant]
     Active Substance: AMISULPRIDE
     Dosage: UNK, UNKNOWN
     Route: 065
  2. OLANZAPINE. [Suspect]
     Active Substance: OLANZAPINE
     Indication: PRODUCT USED FOR UNKNOWN INDICATION
     Dosage: 20 MG, QD
     Route: 065

REACTIONS (8)
  - White blood cell count increased [Recovered/Resolved]
  - Alanine aminotransferase increased [Unknown]
  - Neutrophilia [Recovered/Resolved]
  - Pyrexia [Recovered/Resolved]
  - Diarrhoea [Recovered/Resolved]
  - Eosinophilia [Recovered/Resolved]
  - Hypersensitivity [Unknown]
  - Gamma-glutamyltransferase increased [Unknown]
